FAERS Safety Report 24868858 (Version 1)
Quarter: 2025Q1

REPORT INFORMATION
  Report Type: Spontaneous
  Country: US (occurrence: None)
  Receive Date: 20250117
  Receipt Date: 20250117
  Transmission Date: 20250408
  Serious: Yes (Other)
  Sender: FDA-CTU
  Company Number: None

PATIENT
  Age: 32 Year
  Sex: Female

DRUGS (1)
  1. RITUXIMAB [Suspect]
     Active Substance: RITUXIMAB

REACTIONS (2)
  - Skin mass [None]
  - Adverse drug reaction [None]
